FAERS Safety Report 23063607 (Version 1)
Quarter: 2023Q4

REPORT INFORMATION
  Report Type: Spontaneous
  Country: US (occurrence: US)
  Receive Date: 20231013
  Receipt Date: 20231013
  Transmission Date: 20240110
  Serious: No
  Sender: FDA-Public Use
  Company Number: US-SANDOZ-SDZ2023US041802

PATIENT
  Sex: Female

DRUGS (1)
  1. CLINDAMYCIN [Suspect]
     Active Substance: CLINDAMYCIN
     Indication: Hidradenitis
     Route: 065

REACTIONS (5)
  - Drug ineffective [Unknown]
  - Pruritus [Unknown]
  - Condition aggravated [Unknown]
  - Skin irritation [Unknown]
  - Folliculitis [Unknown]
